FAERS Safety Report 4684340-7 (Version None)
Quarter: 2005Q2

REPORT INFORMATION
  Report Type: 
  Country: None (occurrence: None)
  Receive Date: 20050531
  Receipt Date: 20041108
  Transmission Date: 20051028
  Serious: Yes (Hospitalization)
  Sender: FDA-Public Use
  Company Number: USA041183597

PATIENT
  Age: 21 Year
  Sex: Male

DRUGS (4)
  1. ZYPREXA [Suspect]
     Indication: BIPOLAR DISORDER
     Dosage: 10 MG/1 IN THE EVENING
  2. DEPAKOTE [Concomitant]
  3. SYNTHROID [Concomitant]
  4. AMBIEN [Concomitant]

REACTIONS (3)
  - KETOACIDOSIS [None]
  - SOMNOLENCE [None]
  - VISION BLURRED [None]
